FAERS Safety Report 8871870 (Version 1)
Quarter: 2012Q4

REPORT INFORMATION
  Report Type: 
  Country: US (occurrence: US)
  Receive Date: 20121029
  Receipt Date: 20121029
  Transmission Date: 20130627
  Serious: Yes (Hospitalization)
  Sender: FDA-Public Use
  Company Number: PHEH2012US020980

PATIENT
  Sex: Male

DRUGS (2)
  1. TOBI [Suspect]
  2. TOBI [Suspect]
     Dosage: UNK UKN, UNK
     Dates: start: 201209

REACTIONS (2)
  - Pneumonia [Unknown]
  - Pyrexia [Unknown]
